FAERS Safety Report 18596992 (Version 2)
Quarter: 2021Q2

REPORT INFORMATION
  Report Type: Spontaneous
  Country: DE (occurrence: DE)
  Receive Date: 20201209
  Receipt Date: 20210602
  Transmission Date: 20210717
  Serious: Yes (Death, Hospitalization)
  Sender: FDA-Public Use
  Company Number: DE-MYLANLABS-2020M1099920

PATIENT

DRUGS (20)
  1. METHOTREXATE. [Suspect]
     Active Substance: METHOTREXATE
     Indication: CENTRAL NERVOUS SYSTEM LYMPHOMA
     Dosage: 4000 MG/M2 (CYCLE 1?3; 1 CYCLE = 2 WEEKS; DAY 1)
     Route: 042
  2. RITUXIMAB. [Suspect]
     Active Substance: RITUXIMAB
     Indication: CENTRAL NERVOUS SYSTEM LYMPHOMA
     Dosage: 375 MG/M2 (CYCLE 1?3; 1 CYCLE = 2 WEEKS; DAY 0)
     Route: 042
  3. ARA?C [Suspect]
     Active Substance: CYTARABINE
     Indication: CENTRAL NERVOUS SYSTEM LYMPHOMA
     Dosage: 3000 MG/M2 (CYCLE 4+6; 1 CYCLE = 3 WEEKS; DAYS 1?2)
     Route: 042
  4. METHOTREXATE. [Suspect]
     Active Substance: METHOTREXATE
     Indication: PRODUCT USED FOR UNKNOWN INDICATION
     Dosage: 2.5 MILLIGRAM (CYCLE 4+6; 1 CYCLE = 3 WEEKS; DAYS 3?5) WITH PREDNISOLONE
  5. IFOSFAMIDE. [Suspect]
     Active Substance: IFOSFAMIDE
     Dosage: 800 MG/M2 (CYCLE 5; 1 CYCLE = 2 WEEKS; DAYS 2?4)
     Route: 042
  6. MESNA. [Concomitant]
     Active Substance: MESNA
     Indication: PROPHYLAXIS
     Dosage: UNK
     Route: 065
  7. METHOTREXATE. [Suspect]
     Active Substance: METHOTREXATE
     Dosage: 4000 MG/M2 (CYCLE 5; 1 CYCLE = 2 WEEKS; DAY 1)
     Route: 042
  8. PREDNISOLONE. [Suspect]
     Active Substance: PREDNISOLONE
     Indication: CENTRAL NERVOUS SYSTEM LYMPHOMA
     Dosage: 3 MG ICV (CYCLE 5; 1 CYCLE = 2 WEEKS; DAYS 2?4) WITH MTX
  9. PREDNISOLONE. [Suspect]
     Active Substance: PREDNISOLONE
     Dosage: 3 MILLIGRAM (INTRACEREBROVENTRICULAR (ICV; MODIFIED BONN PROTOCOL) CHEMOTHERAPY)
  10. ARA?C [Suspect]
     Active Substance: CYTARABINE
     Indication: PRODUCT USED FOR UNKNOWN INDICATION
     Dosage: 10 MG (CYCLE 5; 1 CYCLE = 2 WEEKS; DAY 5)
  11. ARA?C [Suspect]
     Active Substance: CYTARABINE
     Dosage: 10 MG (CYCLE 4+6; 1 CYCLE = 3 WEEKS; DAY 6)
  12. ARA?C [Suspect]
     Active Substance: CYTARABINE
     Dosage: 10 MILLIGRAM (INTRACEREBROVENTRICULAR (ICV; MODIFIED BONN PROTOCOL) CHEMOTHERAPY)
  13. G?CSF [Suspect]
     Active Substance: GRANULOCYTE COLONY-STIMULATING FACTOR NOS
     Indication: PROPHYLAXIS
     Dosage: UNK UNK, CYCLE
  14. METHOTREXATE. [Suspect]
     Active Substance: METHOTREXATE
     Dosage: 2,5 MG (CYCLE 5; 1 CYCLE = 2 WEEKS; DAYS 2?4) WITH PREDNISOLONE
  15. METHOTREXATE. [Suspect]
     Active Substance: METHOTREXATE
     Dosage: 2.5 MILLIGRAM
  16. ACICLOVIR [Concomitant]
     Active Substance: ACYCLOVIR
     Indication: PROPHYLAXIS
     Dosage: UNK, CYCLE
     Route: 065
  17. PREDNISOLONE. [Suspect]
     Active Substance: PREDNISOLONE
     Dosage: 3 MG ICV (CYCLE 4+6; 1 CYCLE = 3 WEEKS; DAYS 3?5) WITH MTX
  18. IFOSFAMIDE. [Suspect]
     Active Substance: IFOSFAMIDE
     Indication: CENTRAL NERVOUS SYSTEM LYMPHOMA
     Dosage: 800 MG/M2 (CYCLE 1?3; 1 CYCLE = 2 WEEKS; DAYS 2?4)
     Route: 042
  19. COTRIMOXAZOLE [Concomitant]
     Active Substance: SULFAMETHOXAZOLE\TRIMETHOPRIM
     Indication: PROPHYLAXIS
     Dosage: UNK, CYCLE
     Route: 065
  20. METHOTREXATE. [Suspect]
     Active Substance: METHOTREXATE
     Dosage: HIGH?DOSE SYSTEMIC METHOTREXATE (HDMTX)?BASED CHEMOTHERAPY; INDUCTION THERAPY; 4H INFUSION
     Route: 042

REACTIONS (1)
  - Cardiac arrest [Fatal]
